FAERS Safety Report 12785936 (Version 1)
Quarter: 2016Q3

REPORT INFORMATION
  Report Type: Spontaneous
  Country: US (occurrence: US)
  Receive Date: 20160927
  Receipt Date: 20160927
  Transmission Date: 20161109
  Serious: No
  Sender: FDA-Public Use
  Company Number: US-FRI-1000083828

PATIENT
  Age: 79 Year
  Sex: Female

DRUGS (19)
  1. ALIGN PROTONIX [Concomitant]
     Indication: ABDOMINAL DISTENSION
     Dosage: UNK
  2. CULTUREL [Concomitant]
     Indication: ABDOMINAL DISTENSION
     Dosage: 2/DAY
  3. WARFARIN [Concomitant]
     Active Substance: WARFARIN
     Indication: ATRIAL FIBRILLATION
     Dosage: 2.5 MG MON-WED-FRI, 5 MG TUES, THURS, SAT,SUN
     Dates: start: 1994
  4. MULTIVITAMIN [Concomitant]
     Active Substance: VITAMINS
     Dosage: DAILY
  5. DILTIAZEM. [Concomitant]
     Active Substance: DILTIAZEM
     Indication: HYPERTENSION
     Dosage: 180 MG, QD
  6. LEVOCETIRIZINE [Concomitant]
     Active Substance: LEVOCETIRIZINE
     Indication: HYPERSENSITIVITY
     Dosage: 5 MG, QD
  7. BABY ASPIRIN [Concomitant]
     Active Substance: ASPIRIN
     Dosage: EVERY EVENING
  8. PEPPERMINT OIL [Concomitant]
     Active Substance: PEPPERMINT OIL
     Indication: ABDOMINAL DISTENSION
     Dosage: 4/DAY
  9. PEPPERMINT OIL [Concomitant]
     Active Substance: PEPPERMINT OIL
     Indication: CONSTIPATION
  10. ALIGN PROTONIX [Concomitant]
     Indication: CONSTIPATION
  11. CULTUREL [Concomitant]
     Indication: CONSTIPATION
  12. SPIRONOLACTONE. [Concomitant]
     Active Substance: SPIRONOLACTONE
     Indication: ILL-DEFINED DISORDER
     Dosage: 25 MG 1/2 TAB EVERY OTHER DAY
  13. CARVEDILOL. [Concomitant]
     Active Substance: CARVEDILOL
     Indication: HYPERTENSION
     Dosage: 12.5 MG IN THE MORNING AND 1/2 TAB IN THE EVENING
  14. LINZESS [Suspect]
     Active Substance: LINACLOTIDE
     Dosage: 290 ?G, QD
     Dates: start: 20160413
  15. LUTEIN [Concomitant]
     Active Substance: LUTEIN
     Dosage: 20 MG, QD
  16. VITAMIN D3 [Concomitant]
     Active Substance: CHOLECALCIFEROL
     Dosage: 2000 IU, QD
  17. PROBIOTIC PANTOPRAZOLE [Concomitant]
     Indication: CONSTIPATION
  18. LINZESS [Suspect]
     Active Substance: LINACLOTIDE
     Indication: CONSTIPATION
     Dosage: 145 ?G, QD
     Route: 048
     Dates: start: 20160322, end: 20160412
  19. PROBIOTIC PANTOPRAZOLE [Concomitant]
     Indication: ABDOMINAL DISTENSION
     Dosage: 40 MG, QD

REACTIONS (9)
  - Asthenia [Not Recovered/Not Resolved]
  - Diarrhoea [Recovered/Resolved]
  - Unevaluable event [Not Recovered/Not Resolved]
  - Anal incontinence [Not Recovered/Not Resolved]
  - Off label use [Not Recovered/Not Resolved]
  - Hypotension [Not Recovered/Not Resolved]
  - Drug dose omission [Recovered/Resolved]
  - Blood pressure decreased [Unknown]
  - Drug ineffective [Recovered/Resolved]

NARRATIVE: CASE EVENT DATE: 2016
